FAERS Safety Report 25989065 (Version 2)
Quarter: 2025Q4

REPORT INFORMATION
  Report Type: Spontaneous
  Country: US (occurrence: US)
  Receive Date: 20251103
  Receipt Date: 20251211
  Transmission Date: 20260118
  Serious: Yes (Death, Other)
  Sender: GERON CORP
  Company Number: US-GERON CORPORATION-US-GER-25-000248

PATIENT
  Sex: Male

DRUGS (1)
  1. RYTELO [Suspect]
     Active Substance: IMETELSTAT SODIUM
     Indication: Product used for unknown indication
     Dosage: UNK MILLIGRAM/KILOGRAM
     Route: 042

REACTIONS (2)
  - Haemorrhage intracranial [Fatal]
  - Platelet count decreased [Unknown]
